FAERS Safety Report 5590269-2 (Version None)
Quarter: 2008Q1

REPORT INFORMATION
  Report Type: 
  Country: None (occurrence: None)
  Receive Date: 20080114
  Receipt Date: 20080107
  Transmission Date: 20080703
  Serious: Yes (Hospitalization)
  Sender: FDA-Public Use
  Company Number: US-ASTRAZENECA-2007UW27787

PATIENT
  Age: 15 Year
  Sex: Male
  Weight: 77.5 kg

DRUGS (5)
  1. SEROQUEL [Suspect]
     Route: 048
  2. ADDERALL 10 [Concomitant]
  3. CELEXA [Concomitant]
  4. TENEX [Concomitant]
  5. CLONIDINE [Concomitant]

REACTIONS (1)
  - VENA CAVA THROMBOSIS [None]
